FAERS Safety Report 7377658-0 (Version None)
Quarter: 2011Q1

REPORT INFORMATION
  Report Type: 
  Country: None (occurrence: None)
  Receive Date: 20110316
  Receipt Date: 20110307
  Transmission Date: 20110831
  Serious: Yes (Other)
  Sender: FDA-Public Use
  Company Number: DSA_45134_2011

PATIENT
  Sex: Male

DRUGS (1)
  1. WELLBUTRIN XL [Suspect]
     Indication: DEPRESSION
     Dosage: 3000 MG X 1 (20 TABLETS) ORAL, 150 MG QD ORAL
     Route: 048

REACTIONS (5)
  - INSOMNIA [None]
  - INTENTIONAL OVERDOSE [None]
  - MUSCULAR WEAKNESS [None]
  - JOINT STIFFNESS [None]
  - MUSCLE TWITCHING [None]
